FAERS Safety Report 7647050-X (Version None)
Quarter: 2011Q3

REPORT INFORMATION
  Report Type: 
  Country: None (occurrence: None)
  Receive Date: 20110801
  Receipt Date: 20110721
  Transmission Date: 20111222
  Serious: Yes (Hospitalization)
  Sender: FDA-Public Use
  Company Number: FR-JNJFOC-20110709779

PATIENT
  Sex: Male
  Weight: 60 kg

DRUGS (17)
  1. MEGACE [Concomitant]
     Indication: PRODUCT USED FOR UNKNOWN INDICATION
     Route: 048
  2. PREDNISOLONE [Suspect]
     Indication: PROSTATE CANCER
     Route: 048
  3. ACETAMINOPHEN [Concomitant]
     Indication: PRODUCT USED FOR UNKNOWN INDICATION
     Route: 048
  4. MORPHINE SULFATE [Concomitant]
     Indication: PAIN
     Route: 048
  5. BICARBONATE [Concomitant]
     Indication: PRODUCT USED FOR UNKNOWN INDICATION
     Route: 048
  6. LOVENOX [Concomitant]
     Indication: PRODUCT USED FOR UNKNOWN INDICATION
     Route: 058
  7. ABIRATERONE [Suspect]
     Indication: PROSTATE CANCER
     Route: 048
     Dates: start: 20110523
  8. MORPHINE SULFATE [Concomitant]
     Indication: PAIN
     Route: 048
  9. LEXOMIL [Concomitant]
     Indication: PRODUCT USED FOR UNKNOWN INDICATION
     Dosage: A FOURTH TABLET ON THE MORNING
     Route: 048
  10. OMEPRAZOLE [Concomitant]
     Indication: PROSTATE CANCER
     Route: 048
  11. ABIRATERONE [Suspect]
     Route: 048
  12. PREDNISOLONE [Suspect]
     Route: 048
     Dates: start: 20110623, end: 20110718
  13. LASIX [Concomitant]
     Indication: PRODUCT USED FOR UNKNOWN INDICATION
     Route: 048
  14. FORLAX [Concomitant]
     Indication: CONSTIPATION
     Route: 048
  15. PREDNISOLONE [Suspect]
     Route: 048
  16. PAROXETINE HCL [Concomitant]
     Indication: ANXIETY
     Route: 048
  17. PREDNISONE [Suspect]
     Indication: PROSTATE CANCER
     Route: 048

REACTIONS (7)
  - ASTHENIA [None]
  - DECREASED APPETITE [None]
  - PAIN IN EXTREMITY [None]
  - MUSCULAR WEAKNESS [None]
  - BACK PAIN [None]
  - GENERAL PHYSICAL HEALTH DETERIORATION [None]
  - RENAL FAILURE ACUTE [None]
